FAERS Safety Report 25916240 (Version 1)
Quarter: 2025Q4

REPORT INFORMATION
  Report Type: Spontaneous
  Country: JP (occurrence: JP)
  Receive Date: 20251014
  Receipt Date: 20251014
  Transmission Date: 20260117
  Serious: Yes (Other)
  Sender: TAKEDA
  Company Number: JP-TAKEDA-2025TJP010302

PATIENT
  Age: 7 Decade
  Sex: Male

DRUGS (1)
  1. FRUZAQLA [Suspect]
     Active Substance: FRUQUINTINIB
     Indication: Colorectal cancer recurrent
     Dosage: 2 MILLIGRAM

REACTIONS (1)
  - Anaphylactoid reaction [Recovering/Resolving]
